FAERS Safety Report 7168315-4 (Version None)
Quarter: 2010Q4

REPORT INFORMATION
  Report Type: 
  Country: None (occurrence: None)
  Receive Date: 20101216
  Receipt Date: 20101202
  Transmission Date: 20110411
  Serious: Yes (Hospitalization)
  Sender: FDA-Public Use
  Company Number: ES-AMGEN-QUU414682

PATIENT

DRUGS (3)
  1. ENBREL [Suspect]
     Indication: PSORIASIS
     Dosage: UNK
     Dates: start: 20081101, end: 20090527
  2. ENBREL [Suspect]
     Dosage: 50 MG, 2 TIMES/WK
     Dates: start: 20090917, end: 20100201
  3. ENBREL [Suspect]
     Dosage: 50 MG, QWK
     Dates: start: 20100201, end: 20100510

REACTIONS (3)
  - MYOCARDITIS [None]
  - SYNCOPE [None]
  - VENTRICULAR HYPOKINESIA [None]
